FAERS Safety Report 13759787 (Version 1)
Quarter: 2017Q3

REPORT INFORMATION
  Report Type: Spontaneous
  Country: None (occurrence: GB)
  Receive Date: 20170717
  Receipt Date: 20170717
  Transmission Date: 20171127
  Serious: Yes (Other)
  Sender: FDA-Public Use
  Company Number: GB-MERZ NORTH AMERICA, INC.-17MRZ-00221

PATIENT
  Sex: Female

DRUGS (5)
  1. XEOMIN [Suspect]
     Active Substance: INCOBOTULINUMTOXINA
     Indication: SKIN WRINKLING
     Dosage: (1 IN 1 TOTAL)
     Dates: start: 20170406, end: 20170406
  2. LEVOTHYROXINE SODIUM. [Concomitant]
     Active Substance: LEVOTHYROXINE SODIUM
     Indication: THYROID DISORDER
  3. XEOMIN [Suspect]
     Active Substance: INCOBOTULINUMTOXINA
     Indication: SKIN WRINKLING
  4. XEOMIN [Concomitant]
     Active Substance: INCOBOTULINUMTOXINA
     Indication: SKIN WRINKLING
     Dosage: (1 IN 1 TOTAL)
     Dates: start: 2013
  5. XEOMIN [Concomitant]
     Active Substance: INCOBOTULINUMTOXINA
     Indication: SKIN WRINKLING

REACTIONS (8)
  - Hypoaesthesia [Unknown]
  - Dyspnoea [Unknown]
  - Pruritus [Unknown]
  - Off label use [Unknown]
  - Hyperhidrosis [Unknown]
  - Burning sensation [Unknown]
  - Reversed hot-cold sensation [Unknown]
  - Paraesthesia [Unknown]

NARRATIVE: CASE EVENT DATE: 201704
